FAERS Safety Report 14476484 (Version 1)
Quarter: 2018Q1

REPORT INFORMATION
  Report Type: Spontaneous
  Country: US (occurrence: US)
  Receive Date: 20180201
  Receipt Date: 20180201
  Transmission Date: 20180509
  Serious: No
  Sender: FDA-Public Use
  Company Number: US-SA-2018SA008200

PATIENT
  Age: 69 Year
  Sex: Female

DRUGS (3)
  1. ALIROCUMAB PREFILLED PEN [Suspect]
     Active Substance: ALIROCUMAB
     Indication: HYPERLIPIDAEMIA
     Dates: start: 201605
  2. TYLENOL [Concomitant]
     Active Substance: ACETAMINOPHEN
     Route: 065
  3. PRALUENT [Suspect]
     Active Substance: ALIROCUMAB
     Indication: HYPERLIPIDAEMIA
     Route: 058
     Dates: start: 201605

REACTIONS (5)
  - Headache [Unknown]
  - Glycosylated haemoglobin increased [Unknown]
  - Influenza like illness [Unknown]
  - Injection site haemorrhage [Unknown]
  - Chills [Unknown]

NARRATIVE: CASE EVENT DATE: 201712
